FAERS Safety Report 4314737-6 (Version None)
Quarter: 2004Q1

REPORT INFORMATION
  Report Type: 
  Country: None (occurrence: None)
  Receive Date: 20040308
  Receipt Date: 20040225
  Transmission Date: 20041129
  Serious: Yes (Hospitalization)
  Sender: FDA-Public Use
  Company Number: 2003US005845

PATIENT
  Age: 18 Year
  Sex: Male

DRUGS (9)
  1. AMBISOME [Suspect]
     Indication: SEPSIS
     Dosage: SEE IMAGE
     Route: 042
     Dates: start: 20030807, end: 20030801
  2. AMBISOME [Suspect]
     Indication: SEPSIS
     Dosage: SEE IMAGE
     Route: 042
     Dates: start: 20030523, end: 20030809
  3. HYDROCORTISONE [Concomitant]
  4. TENORMIN [Concomitant]
  5. CALCIUM ACETATE (CALCIUM ACETATE) [Concomitant]
  6. LEVOTHYROXINE SODIUM [Concomitant]
  7. MINOCYCLINE HYDROCHLORIDE [Concomitant]
  8. ZYVOX [Concomitant]
  9. ZIENAM (IMIPENEM, CILASTATIN SODIUM) [Concomitant]

REACTIONS (11)
  - BURNING SENSATION [None]
  - DIFFICULTY IN WALKING [None]
  - GRANULOMA [None]
  - LUNG DISORDER [None]
  - NOCARDIOSIS [None]
  - PAIN [None]
  - PALLANAESTHESIA [None]
  - PARAESTHESIA [None]
  - PERIPHERAL SENSORIMOTOR NEUROPATHY [None]
  - POLYNEUROPATHY [None]
  - SEPSIS [None]
